FAERS Safety Report 20011417 (Version 1)
Quarter: 2021Q4

REPORT INFORMATION
  Report Type: Report from Study
  Country: US (occurrence: US)
  Receive Date: 20211028
  Receipt Date: 20211028
  Transmission Date: 20220303
  Serious: Yes (Other)
  Sender: FDA-Public Use
  Company Number: US-AMGEN-USASL2021163061

PATIENT
  Age: 43 Year
  Sex: Female

DRUGS (2)
  1. ENBREL [Suspect]
     Active Substance: ETANERCEPT
     Indication: Product used for unknown indication
     Dosage: UNK
     Route: 065
  2. ESTRADIOL [Concomitant]
     Active Substance: ESTRADIOL
     Dosage: UNK
     Dates: start: 2020

REACTIONS (15)
  - Myocardial infarction [Unknown]
  - Pain in extremity [Unknown]
  - Skin reaction [Unknown]
  - Ulcer [Unknown]
  - Sinus pain [Unknown]
  - Lip swelling [Unknown]
  - Skin burning sensation [Unknown]
  - Muscle disorder [Unknown]
  - Drug hypersensitivity [Unknown]
  - Abdominal pain upper [Unknown]
  - Sensory disturbance [Unknown]
  - Injection site mass [Not Recovered/Not Resolved]
  - Injection site warmth [Not Recovered/Not Resolved]
  - Injection site erythema [Not Recovered/Not Resolved]
  - Vein disorder [Unknown]

NARRATIVE: CASE EVENT DATE: 20210101
